FAERS Safety Report 6922354-4 (Version None)
Quarter: 2010Q3

REPORT INFORMATION
  Report Type: 
  Country: None (occurrence: None)
  Receive Date: 20100813
  Receipt Date: 20100803
  Transmission Date: 20110219
  Serious: Yes (Other)
  Sender: FDA-Public Use
  Company Number: IE-JNJFOC-20100801489

PATIENT
  Sex: Female

DRUGS (3)
  1. PREZISTA [Suspect]
     Indication: PRODUCT USED FOR UNKNOWN INDICATION
     Route: 048
  2. RITONAVIR [Concomitant]
     Route: 065
  3. ABACAVIR SULFATE AND LAMIVUDINE [Concomitant]
     Route: 065

REACTIONS (2)
  - INTRACRANIAL PRESSURE INCREASED [None]
  - PAPILLOEDEMA [None]
